FAERS Safety Report 7911762-0 (Version None)
Quarter: 2011Q4

REPORT INFORMATION
  Report Type: 
  Country: None (occurrence: None)
  Receive Date: 20111114
  Receipt Date: 20111114
  Transmission Date: 20120403
  Serious: No
  Sender: FDA-Public Use
  Company Number: None

PATIENT
  Age: 75 Year
  Sex: Male
  Weight: 82.553 kg

DRUGS (3)
  1. LIPITOR [Suspect]
     Indication: CORONARY ARTERY BYPASS
     Dosage: ONE
     Route: 048
  2. LIPITOR [Suspect]
     Indication: AORTIC VALVE REPLACEMENT
     Dosage: ONE
     Route: 048
  3. LIPITOR [Suspect]
     Indication: MYOCARDIAL INFARCTION
     Dosage: ONE
     Route: 048

REACTIONS (1)
  - AMNESIA [None]
